FAERS Safety Report 8140968-3 (Version None)
Quarter: 2012Q1

REPORT INFORMATION
  Report Type: 
  Country: None (occurrence: None)
  Receive Date: 20120216
  Receipt Date: 20120215
  Transmission Date: 20120608
  Serious: Yes (Other)
  Sender: FDA-Public Use
  Company Number: BR-JNJFOC-2008006013

PATIENT
  Age: 43 Year
  Sex: Female

DRUGS (4)
  1. SINUTAB [Suspect]
     Indication: INFLUENZA
     Dosage: DAILY DOSE TEXT: UNKNOWN UNKNOWN
     Route: 048
     Dates: start: 20080305
  2. ACETAMINOPHEN [Suspect]
     Route: 048
  3. ACETAMINOPHEN [Suspect]
     Indication: PRODUCT USED FOR UNKNOWN INDICATION
     Route: 048
  4. ASPIRIN [Suspect]
     Indication: PRODUCT USED FOR UNKNOWN INDICATION
     Dosage: DAILY DOSE TEXT: UNKNOWN
     Route: 048

REACTIONS (1)
  - EYE SWELLING [None]
